FAERS Safety Report 18457541 (Version 1)
Quarter: 2020Q4

REPORT INFORMATION
  Report Type: Report from Study
  Country: US (occurrence: US)
  Receive Date: 20201103
  Receipt Date: 20201103
  Transmission Date: 20210114
  Serious: Yes (Death)
  Sender: FDA-Public Use
  Company Number: US-PFIZER INC-2020425689

PATIENT

DRUGS (6)
  1. VINCRISTINE SULFATE. [Suspect]
     Active Substance: VINCRISTINE SULFATE
     Indication: ACUTE LYMPHOCYTIC LEUKAEMIA
     Dosage: 2 MG, CYCLIC DAYS 1-8, TREATMENT A (CYCLES 1,3,5 AND 7)
     Route: 042
  2. ASPARAGINASE [Suspect]
     Active Substance: ASPARAGINASE
     Indication: ACUTE LYMPHOCYTIC LEUKAEMIA
     Dosage: 12000 U/M2 DAYS 2,4,7,9,11  AND 14, TREATMENT A (CYCLES 1,3,5 AND 7)
     Route: 030
  3. DAUNORUBICIN [Suspect]
     Active Substance: DAUNORUBICIN
     Indication: ACUTE LYMPHOCYTIC LEUKAEMIA
     Dosage: 50 MG/M2, CYCLIC DAYS 1-2, TREATMENT A (CYCLES 1,3,5 AND 7)
     Route: 042
  4. PREDNISONE. [Suspect]
     Active Substance: PREDNISONE
     Indication: ACUTE LYMPHOCYTIC LEUKAEMIA
     Dosage: 60 MG/M3, CYCLIC DAYS 1-14, TREATMENT A (CYCLES 1,3,5 AND 7)
     Route: 048
  5. TENIPOSIDE. [Suspect]
     Active Substance: TENIPOSIDE
     Indication: ACUTE LYMPHOCYTIC LEUKAEMIA
     Dosage: 165 MG/M2, CYCLIC  (DAYS 1,4,8, AND 11), TREATMENT B (CYCLES 2,4,6, AND 8)
     Route: 042
  6. CYTARABINE. [Suspect]
     Active Substance: CYTARABINE
     Indication: ACUTE LYMPHOCYTIC LEUKAEMIA
     Dosage: 300 MG/M2, CYCLIC (DAYS 1, 4, 8, AND 11), TREATMENT B (CYCLES 2,4,6, AND 8)
     Route: 042

REACTIONS (1)
  - Endocarditis noninfective [Fatal]
